FAERS Safety Report 24601111 (Version 1)
Quarter: 2024Q4

REPORT INFORMATION
  Report Type: Spontaneous
  Country: US (occurrence: US)
  Receive Date: 20241110
  Receipt Date: 20241110
  Transmission Date: 20250115
  Serious: Yes (Disabling, Other)
  Sender: JOHNSON AND JOHNSON
  Company Number: US-JNJFOC-20241119310

PATIENT
  Age: 8 Decade
  Sex: Male

DRUGS (3)
  1. DARZALEX FASPRO [Suspect]
     Active Substance: DARATUMUMAB\HYALURONIDASE-FIHJ
     Indication: Plasma cell myeloma
     Dosage: 3RD LINE-1ST CYCLE
     Route: 058
     Dates: start: 20230720
  2. DEXAMETHASONE [Suspect]
     Active Substance: DEXAMETHASONE
     Indication: Plasma cell myeloma
     Dosage: 3RD LINE-1ST CYCLE
     Route: 065
     Dates: start: 20230720
  3. POMALIDOMIDE [Suspect]
     Active Substance: POMALIDOMIDE
     Indication: Plasma cell myeloma
     Dosage: 3RD LINE-1ST CYCLE
     Route: 065
     Dates: start: 20230720

REACTIONS (4)
  - Fatigue [Unknown]
  - Neutropenia [Unknown]
  - Constipation [Unknown]
  - Blood glucose fluctuation [Unknown]
